FAERS Safety Report 7655672-5 (Version None)
Quarter: 2011Q3

REPORT INFORMATION
  Report Type: 
  Country: None (occurrence: None)
  Receive Date: 20110804
  Receipt Date: 20110802
  Transmission Date: 20111222
  Serious: Yes (Other)
  Sender: FDA-Public Use
  Company Number: US-PFIZER INC-2011176696

PATIENT
  Sex: Female
  Weight: 81.633 kg

DRUGS (7)
  1. NEXIUM [Concomitant]
     Indication: ABDOMINAL DISCOMFORT
     Dosage: UNK
  2. ZOCOR [Suspect]
     Indication: BLOOD PRESSURE INCREASED
     Dosage: UNK
     Dates: start: 20110801, end: 20110802
  3. ADVIL LIQUI-GELS [Suspect]
     Indication: PAIN
     Dosage: 600 MG, AS NEEDED
     Route: 048
     Dates: end: 20110802
  4. ADVIL LIQUI-GELS [Suspect]
     Indication: HEADACHE
  5. LISINOPRIL [Concomitant]
     Indication: HYPERTENSION
     Dosage: UNK
  6. ADVIL LIQUI-GELS [Suspect]
  7. KLONOPIN [Concomitant]
     Dosage: UNK

REACTIONS (5)
  - HIGH DENSITY LIPOPROTEIN DECREASED [None]
  - BLOOD TRIGLYCERIDES INCREASED [None]
  - BLOOD CHOLESTEROL INCREASED [None]
  - ADVERSE DRUG REACTION [None]
  - BLOOD PRESSURE INCREASED [None]
